FAERS Safety Report 10219311 (Version 3)
Quarter: 2014Q3

REPORT INFORMATION
  Report Type: Spontaneous
  Country: JP (occurrence: JP)
  Receive Date: 20140605
  Receipt Date: 20140812
  Transmission Date: 20150326
  Serious: Yes (Other)
  Sender: FDA-Public Use
  Company Number: JP-ELI_LILLY_AND_COMPANY-JP201405009082

PATIENT
  Age: 88 Year
  Sex: Male

DRUGS (4)
  1. SILODOSIN [Concomitant]
     Active Substance: SILODOSIN
     Indication: LOWER URINARY TRACT SYMPTOMS
     Dosage: UNK
     Dates: start: 20090918
  2. AVOLVE [Concomitant]
     Active Substance: DUTASTERIDE
     Indication: LOWER URINARY TRACT SYMPTOMS
     Dosage: UNK
     Dates: start: 20080918
  3. ZALUTIA [Suspect]
     Active Substance: TADALAFIL
     Indication: BENIGN PROSTATIC HYPERPLASIA
     Dosage: 5 MG, QD
     Route: 048
     Dates: start: 20140425, end: 20140428
  4. JANUVIA [Concomitant]
     Active Substance: SITAGLIPTIN PHOSPHATE
     Indication: DIABETES MELLITUS
     Dosage: UNK

REACTIONS (1)
  - Haematemesis [Recovered/Resolved]

NARRATIVE: CASE EVENT DATE: 20140428
